FAERS Safety Report 4385114-7 (Version None)
Quarter: 2004Q2

REPORT INFORMATION
  Report Type: 
  Country: None (occurrence: None)
  Receive Date: 20040621
  Receipt Date: 20040607
  Transmission Date: 20050107
  Serious: Yes (Death)
  Sender: FDA-Public Use
  Company Number: PHNU2003DE04094

PATIENT
  Sex: Male

DRUGS (1)
  1. LIORESAL [Suspect]
     Indication: MUSCLE SPASTICITY
     Dosage: TEST DOSE; INTRATHECAL
     Route: 037
     Dates: start: 20030801, end: 20030801

REACTIONS (6)
  - DRUG INEFFECTIVE [None]
  - DRUG WITHDRAWAL SYNDROME [None]
  - ELECTROENCEPHALOGRAM ABNORMAL [None]
  - INTRACRANIAL PRESSURE INCREASED [None]
  - MEDICAL DEVICE COMPLICATION [None]
  - SUDDEN DEATH [None]
